FAERS Safety Report 7220795-1 (Version None)
Quarter: 2011Q1

REPORT INFORMATION
  Report Type: 
  Country: None (occurrence: None)
  Receive Date: 20110112
  Receipt Date: 20101231
  Transmission Date: 20110831
  Serious: Yes (Hospitalization)
  Sender: FDA-Public Use
  Company Number: US-BIOGENIDEC-2010BI042786

PATIENT
  Age: 63 Year
  Sex: Male

DRUGS (1)
  1. TYSABRI [Suspect]
     Indication: MULTIPLE SCLEROSIS
     Route: 042
     Dates: start: 20080806

REACTIONS (7)
  - MUSCULAR WEAKNESS [None]
  - HYPERTENSION [None]
  - MEMORY IMPAIRMENT [None]
  - URINARY RETENTION [None]
  - URINARY TRACT INFECTION [None]
  - ENTEROCOLITIS [None]
  - DIARRHOEA [None]
